FAERS Safety Report 21890711 (Version 1)
Quarter: 2023Q1

REPORT INFORMATION
  Report Type: Spontaneous
  Country: US (occurrence: None)
  Receive Date: 20230119
  Receipt Date: 20230119
  Transmission Date: 20230418
  Serious: No
  Sender: FDA-Public Use
  Company Number: None

PATIENT
  Age: 68 Year
  Sex: Female
  Weight: 74.39 kg

DRUGS (11)
  1. SPRYCEL [Suspect]
     Active Substance: DASATINIB
     Indication: Acute lymphocytic leukaemia
     Dosage: FREQUENCY : DAILY;?
     Route: 048
  2. AMLODIPINE [Concomitant]
  3. ATORVASTATIN [Concomitant]
  4. CARVEDILOL [Concomitant]
     Active Substance: CARVEDILOL
  5. DEXAMETHASONE [Concomitant]
  6. JARDIANCE [Concomitant]
  7. PROMETHAZINE [Concomitant]
  8. SODIUM CHLORIDE [Concomitant]
  9. SPIRONOLACTONE [Concomitant]
  10. VINCRISTIEN [Concomitant]
  11. ZARXIO [Concomitant]

REACTIONS (1)
  - COVID-19 [None]
